FAERS Safety Report 26101971 (Version 1)
Quarter: 2025Q4

REPORT INFORMATION
  Report Type: Spontaneous
  Country: US (occurrence: US)
  Receive Date: 20251128
  Receipt Date: 20251128
  Transmission Date: 20260118
  Serious: No
  Sender: AMGEN
  Company Number: US-AMGEN-USASP2025233213

PATIENT
  Age: 40 Year
  Sex: Female

DRUGS (3)
  1. IMDELLTRA [Suspect]
     Active Substance: TARLATAMAB-DLLE
     Indication: Pancreatic neuroendocrine tumour
     Dosage: 1 MILLIGRAM (DAY 1)
     Route: 065
  2. IMDELLTRA [Suspect]
     Active Substance: TARLATAMAB-DLLE
     Indication: Off label use
     Dosage: 10 MILLIGRAM (DAY 8)
     Route: 065
  3. IMDELLTRA [Suspect]
     Active Substance: TARLATAMAB-DLLE
     Dosage: 10 MILLIGRAM (DAY 15)
     Route: 065

REACTIONS (2)
  - Tremor [Recovered/Resolved]
  - Off label use [Unknown]
